FAERS Safety Report 18203894 (Version 1)
Quarter: 2020Q3

REPORT INFORMATION
  Report Type: Spontaneous
  Country: EG (occurrence: EG)
  Receive Date: 20200827
  Receipt Date: 20200827
  Transmission Date: 20201103
  Serious: Yes (Other)
  Sender: FDA-Public Use
  Company Number: EG-FRESENIUS KABI-FK202008617

PATIENT
  Sex: Female

DRUGS (1)
  1. PROPOFOL 2% MCT FRESENIUS [Suspect]
     Active Substance: PROPOFOL
     Indication: SEDATION
     Dosage: AFTER DILUTION 1 PERCENT
     Route: 065

REACTIONS (1)
  - Shock [Unknown]
